FAERS Safety Report 8604372-3 (Version None)
Quarter: 2012Q3

REPORT INFORMATION
  Report Type: 
  Country: None (occurrence: None)
  Receive Date: 20120820
  Receipt Date: 20120809
  Transmission Date: 20120928
  Serious: Yes (Other)
  Sender: FDA-Public Use
  Company Number: US-BAYER-2012-038769

PATIENT
  Sex: Female
  Weight: 151.93 kg

DRUGS (11)
  1. METHYLPREDNISOLONE [Concomitant]
     Dosage: 4 MG, UNK
     Dates: start: 20080107
  2. OMEPRAZOLE [Concomitant]
     Dosage: 20 MG, UNK
     Route: 048
     Dates: start: 20080121
  3. SULFAMETHOXAZOLE [Concomitant]
     Dosage: UNK
     Dates: start: 20080211
  4. CITALOPRAM HYDROBROMIDE [Concomitant]
     Dosage: 40 MG, UNK
     Route: 048
     Dates: start: 20080331
  5. AZITHROMYCIN [Concomitant]
     Dosage: 250 MG, UNK
     Dates: start: 20080105
  6. HYZAAR [Concomitant]
     Dosage: 50-12.5
     Route: 048
     Dates: start: 20080124
  7. YAZ [Suspect]
     Dosage: UNK
     Dates: start: 20071101, end: 20090201
  8. OMEPRAZOLE [Concomitant]
     Dosage: UNK
     Dates: start: 20080424
  9. YASMIN [Suspect]
     Dosage: UNK
     Dates: start: 20070101, end: 20070901
  10. CIPROFLOXACIN HCL [Concomitant]
     Dosage: 500 MG, UNK
     Dates: start: 20080121
  11. MIDOL [ACETYLSALICYLIC ACID,CAFFEINE,CINNAMEDRINE,PHENACETIN] [Concomitant]

REACTIONS (6)
  - CHOLELITHIASIS [None]
  - ABDOMINAL PAIN UPPER [None]
  - HERNIA [None]
  - PAIN [None]
  - GASTROOESOPHAGEAL REFLUX DISEASE [None]
  - FAECAL INCONTINENCE [None]
